FAERS Safety Report 12137695 (Version 1)
Quarter: 2016Q1

REPORT INFORMATION
  Report Type: Spontaneous
  Country: US (occurrence: US)
  Receive Date: 20160302
  Receipt Date: 20160302
  Transmission Date: 20160526
  Serious: No
  Sender: FDA-Public Use
  Company Number: US-ACTAVIS-2015-05739

PATIENT

DRUGS (1)
  1. OXYTROL [Suspect]
     Active Substance: OXYBUTYNIN
     Indication: PRODUCT USED FOR UNKNOWN INDICATION
     Dosage: 1 DF, TWICE A WEEK
     Route: 062
     Dates: start: 201407

REACTIONS (3)
  - Application site discolouration [None]
  - Product adhesion issue [None]
  - Application site bruise [Unknown]
